FAERS Safety Report 6370899-0 (Version None)
Quarter: 2009Q3

REPORT INFORMATION
  Report Type: 
  Country: None (occurrence: None)
  Receive Date: 20090923
  Receipt Date: 20070920
  Transmission Date: 20100115
  Serious: Yes (Other)
  Sender: FDA-Public Use
  Company Number: US-ASTRAZENECA-2006UW22636

PATIENT
  Age: 8 Year
  Sex: Male
  Weight: 32.2 kg

DRUGS (12)
  1. SEROQUEL [Suspect]
     Indication: ATTENTION DEFICIT/HYPERACTIVITY DISORDER
     Route: 048
     Dates: start: 20040101, end: 20050101
  2. SEROQUEL [Suspect]
     Indication: AGGRESSION
     Route: 048
     Dates: start: 20040101, end: 20050101
  3. SEROQUEL [Suspect]
     Indication: POOR QUALITY SLEEP
     Route: 048
     Dates: start: 20040101, end: 20050101
  4. SEROQUEL [Suspect]
     Dosage: 100MG-200MG
     Route: 048
     Dates: end: 20050101
  5. SEROQUEL [Suspect]
     Dosage: 100MG-200MG
     Route: 048
     Dates: end: 20050101
  6. SEROQUEL [Suspect]
     Dosage: 100MG-200MG
     Route: 048
     Dates: end: 20050101
  7. GEODON [Concomitant]
  8. DEPAKOTE [Concomitant]
  9. ZYPREXA [Concomitant]
  10. ADDERALL 10 [Concomitant]
  11. PROZAC [Concomitant]
  12. RISPERDAL [Concomitant]

REACTIONS (1)
  - TARDIVE DYSKINESIA [None]
